FAERS Safety Report 7361509 (Version 4)
Quarter: 2012Q4

REPORT INFORMATION
  Report Type: Report from Study
  Country: GB (occurrence: GB)
  Receive Date: 20100421
  Receipt Date: 20121214
  Transmission Date: 20130627
  Serious: Yes (Other)
  Sender: FDA-Public Use
  Company Number: PHHO2010GB05669

PATIENT
  Age: 60 Year
  Sex: Female
  Weight: 84.9 kg

DRUGS (5)
  1. ZOLEDRONATE [Suspect]
     Indication: METASTASES TO BONE
     Dosage: 4 mg, UNK
     Route: 042
     Dates: start: 20050706, end: 20070912
  2. ZOLEDRONATE [Suspect]
     Dosage: 4 mg /4 weeklly
     Route: 042
     Dates: start: 20071115, end: 20090819
  3. ZOLEDRONATE [Suspect]
     Dosage: 3.5 mg/4 weekly
     Route: 042
     Dates: start: 20091021, end: 20100317
  4. VITAMIN D [Concomitant]
  5. CALCIUM [Concomitant]

REACTIONS (3)
  - Osteonecrosis of jaw [Not Recovered/Not Resolved]
  - Erythema [Not Recovered/Not Resolved]
  - Swelling [Not Recovered/Not Resolved]
